FAERS Safety Report 7669441-3 (Version None)
Quarter: 2011Q3

REPORT INFORMATION
  Report Type: 
  Country: None (occurrence: None)
  Receive Date: 20110808
  Receipt Date: 20110725
  Transmission Date: 20111222
  Serious: Yes (Hospitalization)
  Sender: FDA-Public Use
  Company Number: DE-ROCHE-794644

PATIENT
  Sex: Male
  Weight: 71 kg

DRUGS (5)
  1. IRINOTECAN HCL [Suspect]
     Dosage: LAST ADMINISTRATION PRIOR TO THE EVENT ON 22-JUN-2011, ACCORDING TO FOLFIRI REGIMEN
     Route: 042
     Dates: start: 20100421
  2. BEVACIZUMAB [Suspect]
     Dosage: LAST APPLICATION PRIOR TO THE EVENT ON 18-MAY-2011
     Route: 042
     Dates: start: 20100421
  3. LEUCOVORIN CALCIUM [Suspect]
     Dosage: LAST ADMINISTRATION PRIOR TO THE EVENT ON 22-JUN-2011, ACCORDING TO FOLFIRI REGIMEN
     Route: 042
     Dates: start: 20100421
  4. FLUOROURACIL [Suspect]
     Dosage: LAST ADMINISTRATION  PRIOR TO THE EVENT ON 22-JUN-2011, ACCORDING TO FOLFIRI REGIMEN
     Route: 042
     Dates: start: 20100421
  5. CHEMOTHERAPY NOS [Concomitant]

REACTIONS (3)
  - OESOPHAGEAL CANDIDIASIS [None]
  - ABSCESS JAW [None]
  - GASTROOESOPHAGEAL REFLUX DISEASE [None]
